FAERS Safety Report 20928857 (Version 1)
Quarter: 2022Q2

REPORT INFORMATION
  Report Type: Report from Study
  Country: GB (occurrence: GB)
  Receive Date: 20220607
  Receipt Date: 20220607
  Transmission Date: 20220720
  Serious: Yes (Other)
  Sender: FDA-Public Use
  Company Number: GB-BAXTER-2022BAX011211

PATIENT
  Age: 62 Year
  Sex: Male

DRUGS (1)
  1. DIANEAL [Suspect]
     Active Substance: CALCIUM CHLORIDE\DEXTROSE\MAGNESIUM CHLORIDE\SODIUM CHLORIDE\SODIUM LACTATE
     Indication: Peritoneal dialysis
     Dosage: 12000MLS
     Route: 033
     Dates: start: 20220524

REACTIONS (1)
  - Peritoneal dialysis complication [Unknown]

NARRATIVE: CASE EVENT DATE: 20220525
